FAERS Safety Report 12488146 (Version 1)
Quarter: 2016Q2

REPORT INFORMATION
  Report Type: Spontaneous
  Country: US (occurrence: US)
  Receive Date: 20160622
  Receipt Date: 20160622
  Transmission Date: 20160815
  Serious: No
  Sender: FDA-Public Use
  Company Number: US-PFIZER INC-2016298101

PATIENT
  Age: 76 Year
  Sex: Male
  Weight: 55.78 kg

DRUGS (2)
  1. AMIODARONE HCL [Suspect]
     Active Substance: AMIODARONE HYDROCHLORIDE
     Dosage: 2400 MG, UNK
     Route: 042
  2. AMIODARONE [Suspect]
     Active Substance: AMIODARONE
     Dosage: 200 MG, UNK

REACTIONS (10)
  - Feeling abnormal [Unknown]
  - Quality of life decreased [Unknown]
  - Confusional state [Unknown]
  - Balance disorder [Unknown]
  - Poor quality sleep [Unknown]
  - Gait disturbance [Unknown]
  - Anxiety [Unknown]
  - Photosensitivity reaction [Unknown]
  - Cardiac disorder [Unknown]
  - Tinnitus [Unknown]
